FAERS Safety Report 11703244 (Version 4)
Quarter: 2015Q4

REPORT INFORMATION
  Report Type: Report from Study
  Country: KR (occurrence: KR)
  Receive Date: 20151105
  Receipt Date: 20151229
  Transmission Date: 20160304
  Serious: Yes (Hospitalization)
  Sender: FDA-Public Use
  Company Number: KR-CONCORDIA PHARMACEUTICALS INC.-PIN-2015-00050

PATIENT
  Age: 55 Year
  Sex: Male

DRUGS (76)
  1. CISPLATIN. [Suspect]
     Active Substance: CISPLATIN
     Route: 042
     Dates: start: 20151010, end: 20151010
  2. MEGACE F [Concomitant]
     Indication: PROPHYLAXIS
     Route: 048
     Dates: start: 20150915, end: 20151020
  3. LAMINA-G [Concomitant]
     Indication: PROPHYLAXIS
     Route: 048
     Dates: start: 20150916, end: 20151020
  4. LAMINA-G [Concomitant]
     Route: 048
     Dates: start: 20151022
  5. LANSTON [Concomitant]
     Active Substance: LANSOPRAZOLE
     Route: 048
     Dates: start: 20151022
  6. AMIKACIN SULFATE. [Concomitant]
     Active Substance: AMIKACIN SULFATE
     Route: 042
     Dates: start: 20150924, end: 20150924
  7. SANCUSO [Concomitant]
     Active Substance: GRANISETRON
     Route: 065
     Dates: start: 20151027, end: 20151027
  8. XYZAL [Concomitant]
     Active Substance: LEVOCETIRIZINE DIHYDROCHLORIDE
     Route: 048
     Dates: start: 20151022, end: 20151028
  9. OXYCODONE HYDROCHLORIDE. [Concomitant]
     Active Substance: OXYCODONE HYDROCHLORIDE
     Route: 048
     Dates: start: 20150925, end: 20150926
  10. MUCOSTA [Concomitant]
     Active Substance: REBAMIPIDE
     Indication: PRODUCT USED FOR UNKNOWN INDICATION
     Route: 048
     Dates: start: 20151022
  11. OLIMEL [Concomitant]
     Active Substance: AMINO ACIDS\DEXTROSE\SOYBEAN OIL
     Route: 042
     Dates: start: 20151022, end: 20151023
  12. MEPERIDINE [Concomitant]
     Active Substance: MEPERIDINE
     Indication: PRODUCT USED FOR UNKNOWN INDICATION
     Route: 030
     Dates: start: 20151021, end: 20151021
  13. GEMCITABINE [Suspect]
     Active Substance: GEMCITABINE\GEMCITABINE HYDROCHLORIDE
     Route: 065
     Dates: start: 20151028, end: 20151028
  14. CISPLATIN. [Suspect]
     Active Substance: CISPLATIN
     Route: 065
     Dates: start: 20151028, end: 20151028
  15. TARGIN [Concomitant]
     Active Substance: NALOXONE HYDROCHLORIDE\OXYCODONE HYDROCHLORIDE
     Indication: DISEASE COMPLICATION
     Route: 048
     Dates: start: 20151022, end: 20151022
  16. TARGIN [Concomitant]
     Active Substance: NALOXONE HYDROCHLORIDE\OXYCODONE HYDROCHLORIDE
     Route: 048
     Dates: start: 20150925, end: 20150925
  17. GODEX [Concomitant]
     Route: 048
     Dates: start: 20151025, end: 20151025
  18. FENTANYL CITRATE. [Concomitant]
     Active Substance: FENTANYL CITRATE
     Route: 048
     Dates: start: 20151026
  19. MUCOSTEN [Concomitant]
     Dates: start: 20151021, end: 20151021
  20. OLIMEL [Concomitant]
     Active Substance: AMINO ACIDS\DEXTROSE\SOYBEAN OIL
     Indication: PRODUCT USED FOR UNKNOWN INDICATION
     Route: 042
     Dates: start: 20151020, end: 20151022
  21. PHOTOFRIN [Suspect]
     Active Substance: PORFIMER SODIUM
     Indication: CHOLANGIOCARCINOMA
     Dates: start: 20150909, end: 20150909
  22. TARGIN [Concomitant]
     Active Substance: NALOXONE HYDROCHLORIDE\OXYCODONE HYDROCHLORIDE
     Indication: DISEASE COMPLICATION
     Route: 048
     Dates: start: 20150922, end: 20150923
  23. AMIKACIN SULFATE. [Concomitant]
     Active Substance: AMIKACIN SULFATE
     Indication: CHOLANGITIS
     Route: 042
     Dates: start: 20150920, end: 20150923
  24. TRESTAN [Concomitant]
     Indication: PRODUCT USED FOR UNKNOWN INDICATION
     Route: 048
     Dates: start: 20150917, end: 20150923
  25. FENTANYL CITRATE. [Concomitant]
     Active Substance: FENTANYL CITRATE
     Indication: DISEASE COMPLICATION
     Route: 048
     Dates: start: 20150927, end: 20150929
  26. MACPERAN [Concomitant]
     Indication: VOMITING
     Route: 042
     Dates: start: 20151001, end: 20151001
  27. MACPERAN [Concomitant]
     Route: 042
     Dates: start: 20151004, end: 20151004
  28. MACPERAN [Concomitant]
     Route: 042
     Dates: start: 20151004, end: 20151008
  29. ONSERAN [Concomitant]
     Indication: NAUSEA
     Route: 048
     Dates: start: 20151004, end: 20151006
  30. ONSERAN [Concomitant]
     Indication: PROPHYLAXIS
     Route: 048
     Dates: start: 20151010, end: 20151012
  31. OXYCODONE HYDROCHLORIDE. [Concomitant]
     Active Substance: OXYCODONE HYDROCHLORIDE
     Route: 048
     Dates: start: 20150927, end: 20150927
  32. DEXTROSE. [Concomitant]
     Active Substance: DEXTROSE
     Indication: PRODUCT USED FOR UNKNOWN INDICATION
     Route: 048
     Dates: start: 20151020, end: 20151024
  33. GEMCITABINE [Suspect]
     Active Substance: GEMCITABINE\GEMCITABINE HYDROCHLORIDE
     Indication: CHOLANGIOCARCINOMA
     Route: 042
     Dates: start: 20151001, end: 20151001
  34. ENCOVER [Concomitant]
     Indication: PROPHYLAXIS
     Route: 048
     Dates: start: 20151002, end: 20151007
  35. MEGACE F [Concomitant]
     Route: 048
     Dates: start: 20151022
  36. XYZAL [Concomitant]
     Active Substance: LEVOCETIRIZINE DIHYDROCHLORIDE
     Indication: PROPHYLAXIS
     Route: 048
     Dates: start: 20150923, end: 20151020
  37. OXYCODONE HYDROCHLORIDE. [Concomitant]
     Active Substance: OXYCODONE HYDROCHLORIDE
     Indication: DISEASE COMPLICATION
     Route: 048
     Dates: start: 20150923, end: 20150923
  38. OXYCODONE HYDROCHLORIDE. [Concomitant]
     Active Substance: OXYCODONE HYDROCHLORIDE
     Route: 048
     Dates: start: 20150924, end: 20150924
  39. NASERON [Concomitant]
     Indication: PROPHYLAXIS
     Route: 042
     Dates: start: 20151001, end: 20151001
  40. MUCOSTEN [Concomitant]
     Indication: PRODUCT USED FOR UNKNOWN INDICATION
     Dates: start: 20151020, end: 20151020
  41. MUCOSTEN [Concomitant]
     Dates: start: 20151022, end: 20151022
  42. CISPLATIN. [Suspect]
     Active Substance: CISPLATIN
     Indication: CHOLANGIOCARCINOMA
     Route: 042
     Dates: start: 20151001, end: 20151001
  43. TARGIN [Concomitant]
     Active Substance: NALOXONE HYDROCHLORIDE\OXYCODONE HYDROCHLORIDE
     Route: 048
     Dates: start: 20150926, end: 20151020
  44. TARGIN [Concomitant]
     Active Substance: NALOXONE HYDROCHLORIDE\OXYCODONE HYDROCHLORIDE
     Route: 065
  45. ENCOVER [Concomitant]
     Route: 048
     Dates: start: 20151023, end: 20151105
  46. GODEX [Concomitant]
     Route: 048
     Dates: start: 20151026
  47. NEXIUM [Concomitant]
     Active Substance: ESOMEPRAZOLE MAGNESIUM
     Indication: NAUSEA
     Route: 042
     Dates: start: 20151004, end: 20151004
  48. DUROGESIC [Concomitant]
     Active Substance: FENTANYL
     Indication: DISEASE COMPLICATION
     Route: 062
     Dates: start: 20150923
  49. DUROGESIC [Concomitant]
     Active Substance: FENTANYL
     Indication: DISEASE COMPLICATION
     Dates: start: 20150821, end: 20150920
  50. FENTANYL CITRATE. [Concomitant]
     Active Substance: FENTANYL CITRATE
     Route: 048
     Dates: start: 20151002
  51. PETHIDINE [Concomitant]
     Active Substance: MEPERIDINE
     Route: 030
     Dates: start: 20150921, end: 20150921
  52. NORZYME [Concomitant]
     Indication: PROPHYLAXIS
     Route: 048
     Dates: start: 20150921, end: 20150921
  53. NORZYME [Concomitant]
     Route: 048
     Dates: start: 20151024, end: 20151024
  54. NASERON [Concomitant]
     Route: 042
     Dates: start: 20151010, end: 20151010
  55. PENIRAMIN [Concomitant]
     Indication: PROPHYLAXIS
     Route: 042
     Dates: start: 20150922, end: 20150922
  56. GEMCITABINE [Suspect]
     Active Substance: GEMCITABINE\GEMCITABINE HYDROCHLORIDE
     Route: 065
     Dates: start: 20151010, end: 20151010
  57. TYLENOL ER [Concomitant]
     Active Substance: ACETAMINOPHEN
     Indication: PROPHYLAXIS
     Route: 048
     Dates: start: 20151002, end: 20151011
  58. GODEX [Concomitant]
     Route: 048
     Dates: start: 20150923, end: 20151020
  59. HARTMANN^S SOLUTION [Concomitant]
     Active Substance: CALCIUM CHLORIDE\POTASSIUM CHLORIDE\SODIUM CHLORIDE\SODIUM LACTATE
     Indication: PROPHYLAXIS
     Route: 042
     Dates: start: 20151001, end: 20151001
  60. PETHIDINE [Concomitant]
     Active Substance: MEPERIDINE
     Indication: CHOLANGITIS
     Route: 030
     Dates: start: 20150921, end: 20150922
  61. PETHIDINE [Concomitant]
     Active Substance: MEPERIDINE
     Route: 030
     Dates: start: 20150920, end: 20150920
  62. OXYCODONE HYDROCHLORIDE. [Concomitant]
     Active Substance: OXYCODONE HYDROCHLORIDE
     Route: 048
     Dates: start: 20151025, end: 20151025
  63. PANTOLOC [Concomitant]
     Active Substance: PANTOPRAZOLE SODIUM
     Indication: NAUSEA
     Route: 048
     Dates: start: 20151004, end: 20151010
  64. URSA [Concomitant]
     Indication: DISEASE COMPLICATION
     Route: 048
     Dates: start: 20150918, end: 20151020
  65. ADELAVIN NO.9 [Concomitant]
     Indication: DISEASE COMPLICATION
     Route: 042
     Dates: start: 20150923, end: 20151002
  66. HEPA-MERZ [Concomitant]
     Indication: PRODUCT USED FOR UNKNOWN INDICATION
     Route: 042
     Dates: start: 20151020, end: 20151024
  67. TARGIN [Concomitant]
     Active Substance: NALOXONE HYDROCHLORIDE\OXYCODONE HYDROCHLORIDE
     Route: 048
     Dates: start: 20151025
  68. MYPOL [Concomitant]
     Indication: DISEASE COMPLICATION
     Route: 048
     Dates: start: 20150915, end: 20151001
  69. MYPOL [Concomitant]
     Route: 048
     Dates: start: 20151027, end: 20151027
  70. URSA [Concomitant]
     Route: 048
     Dates: start: 20151022
  71. MYPOL [Concomitant]
     Route: 048
     Dates: start: 20151002, end: 20151002
  72. LANSTON [Concomitant]
     Active Substance: LANSOPRAZOLE
     Indication: PROPHYLAXIS
     Route: 048
     Dates: start: 20150915, end: 20151020
  73. GODEX [Concomitant]
     Indication: DISEASE COMPLICATION
     Route: 048
     Dates: start: 20150922, end: 20150922
  74. TRESTAN [Concomitant]
     Route: 048
     Dates: start: 20150924, end: 20150924
  75. FENTANYL CITRATE. [Concomitant]
     Active Substance: FENTANYL CITRATE
     Route: 048
     Dates: start: 20151025, end: 20151025
  76. SANCUSO [Concomitant]
     Active Substance: GRANISETRON
     Indication: PROPHYLAXIS
     Route: 062
     Dates: start: 20151010, end: 20151010

REACTIONS (1)
  - Cholangitis [Recovered/Resolved]

NARRATIVE: CASE EVENT DATE: 20151020
